FAERS Safety Report 20021044 (Version 6)
Quarter: 2022Q2

REPORT INFORMATION
  Report Type: Report from Study
  Country: US (occurrence: US)
  Receive Date: 20211101
  Receipt Date: 20220526
  Transmission Date: 20220721
  Serious: No
  Sender: FDA-Public Use
  Company Number: US-NOVARTISTESTPH-NVSC2021US249425

PATIENT
  Sex: Female
  Weight: 54.422 kg

DRUGS (2)
  1. TREPROSTINIL [Suspect]
     Active Substance: TREPROSTINIL
     Indication: Pulmonary arterial hypertension
     Dosage: 125 NG/KG/MIN
     Route: 058
     Dates: start: 20210923
  2. TREPROSTINIL [Suspect]
     Active Substance: TREPROSTINIL
     Dosage: UNK., 125 NG/KG/MIN
     Route: 058

REACTIONS (5)
  - Abscess [Unknown]
  - Skin discolouration [Unknown]
  - Chest discomfort [Unknown]
  - Dyspnoea [Unknown]
  - Injection site pruritus [Unknown]
